FAERS Safety Report 6692499-5 (Version None)
Quarter: 2010Q2

REPORT INFORMATION
  Report Type: 
  Country: None (occurrence: None)
  Receive Date: 20100422
  Receipt Date: 20100414
  Transmission Date: 20101027
  Serious: No
  Sender: FDA-Public Use
  Company Number: B0635623A

PATIENT
  Sex: Female
  Weight: 50 kg

DRUGS (2)
  1. TYKERB [Suspect]
     Indication: BREAST CANCER
     Dosage: 1250MG PER DAY
     Route: 048
     Dates: start: 20100210, end: 20100324
  2. XELODA [Suspect]
     Indication: DRUG USE FOR UNKNOWN INDICATION
     Dosage: 3600MG PER DAY
     Route: 048
     Dates: start: 20100210, end: 20100303

REACTIONS (5)
  - CHAPPED LIPS [None]
  - DECREASED APPETITE [None]
  - DIARRHOEA [None]
  - DRY SKIN [None]
  - DYSPEPSIA [None]
